FAERS Safety Report 19433541 (Version 2)
Quarter: 2021Q3

REPORT INFORMATION
  Report Type: Spontaneous
  Country: US (occurrence: US)
  Receive Date: 20210617
  Receipt Date: 20210707
  Transmission Date: 20211014
  Serious: No
  Sender: FDA-Public Use
  Company Number: US-JNJFOC-20210631546

PATIENT
  Age: 49 Year
  Sex: Male

DRUGS (1)
  1. IMODIUM [Suspect]
     Active Substance: LOPERAMIDE HYDROCHLORIDE
     Indication: DIARRHOEA
     Dosage: SINCE MORE THAN 10 YEARS , DAILY + REGULARLY IN RELATIVELY LARGE DOSES?STARTED BY 1?2 CAPLETS ,OD/ N
     Route: 065
     Dates: start: 20090101

REACTIONS (3)
  - Hypoglycaemia [Unknown]
  - Off label use [Unknown]
  - Incorrect dose administered [Unknown]

NARRATIVE: CASE EVENT DATE: 20090501
